FAERS Safety Report 4429287-6 (Version None)
Quarter: 2004Q3

REPORT INFORMATION
  Report Type: 
  Country: None (occurrence: None)
  Receive Date: 20040818
  Receipt Date: 20040818
  Transmission Date: 20050211
  Serious: Yes (Hospitalization)
  Sender: FDA-Public Use
  Company Number: None

PATIENT
  Age: 47 Year
  Sex: Male
  Weight: 162.3877 kg

DRUGS (6)
  1. AUGMENTIN '125' [Suspect]
     Indication: PNEUMONIA
     Dosage: 400MG  TID  ORAL
     Route: 048
     Dates: start: 20040207, end: 20040223
  2. MERTFORMIN [Concomitant]
  3. GLUCOTROL [Concomitant]
  4. HYDROCHLOROTHIAZIDE [Concomitant]
  5. LIPITOR [Concomitant]
  6. CHILDREN'S ASPIRIN [Concomitant]

REACTIONS (5)
  - EXERCISE TOLERANCE DECREASED [None]
  - FATIGUE [None]
  - NEPHRITIS INTERSTITIAL [None]
  - URINE FLOW DECREASED [None]
  - URINE OUTPUT DECREASED [None]
